FAERS Safety Report 19007363 (Version 1)
Quarter: 2021Q1

REPORT INFORMATION
  Report Type: Spontaneous
  Country: US (occurrence: US)
  Receive Date: 20210312
  Receipt Date: 20210312
  Transmission Date: 20210420
  Serious: No
  Sender: FDA-Public Use
  Company Number: None

PATIENT
  Age: 36 Year
  Sex: Male

DRUGS (1)
  1. OTEZLA [Suspect]
     Active Substance: APREMILAST
     Indication: PSORIASIS
     Dosage: INJECT 150MG (2 SYRINGES) SUBCUTANEOUSLY AT WEEK 0 AND  WEEK 4 AS DIRECTED?UNKNOWN DATES OF USE
     Route: 058

REACTIONS (2)
  - Gastric disorder [None]
  - Mood swings [None]
